FAERS Safety Report 4288867-1 (Version None)
Quarter: 2004Q1

REPORT INFORMATION
  Report Type: 
  Country: None (occurrence: None)
  Receive Date: 20040203
  Receipt Date: 20031017
  Transmission Date: 20041129
  Serious: Yes (Other)
  Sender: FDA-Public Use
  Company Number: 200326210BWH

PATIENT
  Age: 65 Year
  Sex: Female

DRUGS (2)
  1. AVELOX [Suspect]
     Indication: WOUND
     Dosage: 400 MG, ONCE, ORAL
     Route: 048
     Dates: start: 20031010
  2. HYDROCHLOROTHIAZIDE [Concomitant]

REACTIONS (5)
  - DIZZINESS [None]
  - DRY MOUTH [None]
  - DYSPNOEA [None]
  - FEELING ABNORMAL [None]
  - PALPITATIONS [None]
